FAERS Safety Report 25421116 (Version 1)
Quarter: 2025Q2

REPORT INFORMATION
  Report Type: Spontaneous
  Country: US (occurrence: US)
  Receive Date: 20250611
  Receipt Date: 20250611
  Transmission Date: 20250717
  Serious: No
  Sender: BRAEBURN PHARMACEUTICALS
  Company Number: US-BRAEBURN PHARMACEUTICALS-US-BRA-25-000394

PATIENT

DRUGS (2)
  1. BRIXADI [Suspect]
     Active Substance: BUPRENORPHINE
     Indication: Drug dependence
     Dosage: 96 MILLIGRAM, MONTHLY
     Route: 058
     Dates: start: 202411
  2. BRIXADI [Suspect]
     Active Substance: BUPRENORPHINE
     Dosage: 96 MILLIGRAM, MONTHLY, QUARTER LESS THAN THE 96MG OF BRIXADI.
     Route: 058
     Dates: start: 20250430

REACTIONS (6)
  - Illness [Recovering/Resolving]
  - Nausea [Recovering/Resolving]
  - Vomiting [Recovering/Resolving]
  - Respiration abnormal [Recovered/Resolved]
  - Overdose [Unknown]
  - Incorrect dose administered [Unknown]

NARRATIVE: CASE EVENT DATE: 20241101
